FAERS Safety Report 12850683 (Version 1)
Quarter: 2016Q4

REPORT INFORMATION
  Report Type: Spontaneous
  Country: US (occurrence: US)
  Receive Date: 20161014
  Receipt Date: 20161014
  Transmission Date: 20170207
  Serious: Yes (Other)
  Sender: FDA-Public Use
  Company Number: US-SA-2016SA185288

PATIENT
  Sex: Female

DRUGS (2)
  1. NORCO [Concomitant]
     Active Substance: ACETAMINOPHEN\HYDROCODONE BITARTRATE
  2. ICY HOT WITH LIDOCAINE PAIN RELIEVING [Suspect]
     Active Substance: LIDOCAINE\MENTHOL
     Route: 065

REACTIONS (5)
  - Stenosis [Unknown]
  - Haemorrhage [Unknown]
  - Coagulation time prolonged [Unknown]
  - Blood urine present [Unknown]
  - Nephrolithiasis [Unknown]

NARRATIVE: CASE EVENT DATE: 20161004
